APPROVED DRUG PRODUCT: QUTENZA
Active Ingredient: CAPSAICIN
Strength: 8%
Dosage Form/Route: PATCH;TOPICAL
Application: N022395 | Product #001
Applicant: AVERITAS PHARMA INC
Approved: Nov 16, 2009 | RLD: Yes | RS: Yes | Type: RX

PATENTS:
Patent 9226903 | Expires: Dec 15, 2028
Patent 8821920 | Expires: Mar 26, 2030